FAERS Safety Report 4264622-3 (Version None)
Quarter: 2004Q1

REPORT INFORMATION
  Report Type: 
  Country: None (occurrence: None)
  Receive Date: 20040102
  Receipt Date: 20031222
  Transmission Date: 20041129
  Serious: Yes (Hospitalization)
  Sender: FDA-Public Use
  Company Number: 03P-056-0245646-00

PATIENT
  Age: 70 Year
  Sex: Female

DRUGS (1)
  1. ISOPTIN TAB [Suspect]
     Indication: ATRIAL FIBRILLATION
     Dosage: PER ORAL
     Route: 048
     Dates: start: 20030923, end: 20031023

REACTIONS (1)
  - ARRHYTHMIA [None]
